FAERS Safety Report 24567003 (Version 2)
Quarter: 2024Q4

REPORT INFORMATION
  Report Type: Spontaneous
  Country: DK (occurrence: DK)
  Receive Date: 20241030
  Receipt Date: 20241111
  Transmission Date: 20250115
  Serious: Yes (Other)
  Sender: MYLAN
  Company Number: DK-002147023-NVSC2024DK203383

PATIENT
  Age: 28 Year
  Sex: Female

DRUGS (2)
  1. EVEROLIMUS [Suspect]
     Active Substance: EVEROLIMUS
     Indication: Sarcoma
     Dosage: UNK
     Route: 065
  2. SIROLIMUS [Concomitant]
     Active Substance: SIROLIMUS
     Indication: Product used for unknown indication
     Dosage: UNK
     Route: 065

REACTIONS (3)
  - Neuropathy peripheral [Unknown]
  - Tumour compression [Unknown]
  - Dysmorphism [Unknown]
